FAERS Safety Report 21543564 (Version 1)
Quarter: 2022Q4

REPORT INFORMATION
  Report Type: Report from Study
  Country: US (occurrence: None)
  Receive Date: 20221102
  Receipt Date: 20221102
  Transmission Date: 20230113
  Serious: Yes (Life-Threatening)
  Sender: FDA-Public Use
  Company Number: 2022A361670

PATIENT
  Weight: 104.3 kg

DRUGS (1)
  1. TAGRISSO [Suspect]
     Active Substance: OSIMERTINIB
     Indication: Non-small cell lung cancer metastatic
     Route: 048
     Dates: start: 202101

REACTIONS (8)
  - Nasal crusting [Unknown]
  - Diarrhoea [Unknown]
  - Abdominal discomfort [Unknown]
  - Pain [Unknown]
  - Rash [Unknown]
  - Nail disorder [Recovering/Resolving]
  - Musculoskeletal stiffness [Unknown]
  - Aortic aneurysm [Unknown]
